FAERS Safety Report 23113953 (Version 1)
Quarter: 2023Q4

REPORT INFORMATION
  Report Type: Report from Study
  Country: DE (occurrence: DE)
  Receive Date: 20231027
  Receipt Date: 20231027
  Transmission Date: 20240109
  Serious: Yes (Death, Hospitalization)
  Sender: FDA-Public Use
  Company Number: None

PATIENT
  Age: 72 Year
  Sex: Female
  Weight: 53 kg

DRUGS (25)
  1. DOCETAXEL [Suspect]
     Active Substance: DOCETAXEL
     Indication: Adenocarcinoma gastric
     Dosage: LAST DOSE PRIOR TO SAE: 24/MAY/2012
     Dates: start: 20120524, end: 20120710
  2. FLUOROURACIL [Suspect]
     Active Substance: FLUOROURACIL
     Indication: Product used for unknown indication
     Dates: start: 20120724, end: 20121010
  3. OXALIPLATIN [Suspect]
     Active Substance: OXALIPLATIN
     Indication: Product used for unknown indication
     Dates: start: 20120724, end: 20121010
  4. HERCEPTIN [Suspect]
     Active Substance: TRASTUZUMAB
     Indication: Product used for unknown indication
     Dates: start: 20121010
  5. XELODA [Suspect]
     Active Substance: CAPECITABINE
     Indication: Adenocarcinoma gastric
     Dates: start: 20111114, end: 20121213
  6. LOPERAMIDE [Concomitant]
     Active Substance: LOPERAMIDE
  7. LEVOTHYROXINE [Concomitant]
     Active Substance: LEVOTHYROXINE
  8. DIPYRONE [Concomitant]
     Active Substance: DIPYRONE
     Dates: start: 20120604, end: 20120605
  9. FOSFOMYCIN [Concomitant]
     Active Substance: FOSFOMYCIN
  10. ENALAPRIL [Concomitant]
     Active Substance: ENALAPRIL
     Dosage: DAILY DOSE: 20 MG MILLGRAM(S) EVERY DAYS
  11. VITAMIN B12 [Concomitant]
     Active Substance: CYANOCOBALAMIN
  12. SIMVASTATIN [Concomitant]
     Active Substance: SIMVASTATIN
  13. NEUROTRAT [Concomitant]
  14. NEBIVOLOL [Concomitant]
     Active Substance: NEBIVOLOL
  15. PANCRELIPASE [Concomitant]
     Active Substance: PANCRELIPASE
  16. GRANISETRON [Concomitant]
     Active Substance: GRANISETRON
  17. MCP [Concomitant]
     Active Substance: METOCLOPRAMIDE HYDROCHLORIDE
     Dosage: DROPS
  18. LEUCOVORIN [Concomitant]
     Active Substance: LEUCOVORIN\LEUCOVORIN CALCIUM
     Dates: start: 20121010
  19. LEUCOVORIN [Concomitant]
     Active Substance: LEUCOVORIN\LEUCOVORIN CALCIUM
     Dates: start: 20120724, end: 20120926
  20. LEUCOVORIN [Concomitant]
     Active Substance: LEUCOVORIN\LEUCOVORIN CALCIUM
     Dates: start: 20120524
  21. DOCETAXEL [Suspect]
     Active Substance: DOCETAXEL
     Indication: Product used for unknown indication
     Dates: start: 20120724, end: 20120926
  22. OXALIPLATIN [Suspect]
     Active Substance: OXALIPLATIN
     Indication: Adenocarcinoma gastric
     Dosage: LAST DOSE PRIOR TO SAE: 24/MAY/2012
     Dates: start: 20120524, end: 20120710
  23. HERCEPTIN [Suspect]
     Active Substance: TRASTUZUMAB
     Indication: Adenocarcinoma gastric
     Dosage: LAST DOSE PRIOR TO SAE: 24/MAY/2012
     Dates: start: 20120524, end: 20120710
  24. HERCEPTIN [Suspect]
     Active Substance: TRASTUZUMAB
     Indication: Product used for unknown indication
     Dates: start: 20120724, end: 20120926
  25. FLUOROURACIL [Suspect]
     Active Substance: FLUOROURACIL
     Indication: Adenocarcinoma gastric
     Dosage: LAST DOSE PRIOR TO SAE: 25/MAY/2012
     Dates: start: 20120524, end: 20120710

REACTIONS (20)
  - Gait disturbance [Recovered/Resolved]
  - Pyrexia [Recovered/Resolved]
  - Cachexia [Unknown]
  - Weight decreased [Recovered/Resolved with Sequelae]
  - Dehydration [Recovered/Resolved]
  - Pulmonary oedema [Recovered/Resolved with Sequelae]
  - Urinary tract infection [Recovered/Resolved]
  - Asthenia [Recovered/Resolved]
  - Pneumonia [Fatal]
  - Syncope [Recovered/Resolved]
  - Leukopenia [Recovered/Resolved]
  - Anaemia [Recovered/Resolved]
  - Hypokalaemia [Recovered/Resolved]
  - Acute kidney injury [Recovered/Resolved]
  - Urosepsis [Recovered/Resolved]
  - Device occlusion [Recovered/Resolved]
  - Dyspnoea [Fatal]
  - Dizziness [Recovered/Resolved]
  - General physical health deterioration [Fatal]
  - Atrioventricular block [Recovered/Resolved]

NARRATIVE: CASE EVENT DATE: 20120604
